FAERS Safety Report 18891526 (Version 1)
Quarter: 2021Q1

REPORT INFORMATION
  Report Type: Spontaneous
  Country: DE (occurrence: DE)
  Receive Date: 20210215
  Receipt Date: 20210215
  Transmission Date: 20210420
  Serious: Yes (Hospitalization, Other)
  Sender: FDA-Public Use
  Company Number: DE-AUROBINDO-AUR-APL-2021-005487

PATIENT
  Sex: Female
  Weight: 100 kg

DRUGS (13)
  1. KATADOLON [Suspect]
     Active Substance: FLUPIRTINE
     Indication: PRODUCT USED FOR UNKNOWN INDICATION
     Dosage: UNK, ONCE A DAY,QD
     Route: 065
  2. RANITIDIN 1 A PHARMA [Suspect]
     Active Substance: RANITIDINE HYDROCHLORIDE
     Indication: CHRONIC GASTRITIS
  3. RANITIDIN 1 A PHARMA [Suspect]
     Active Substance: RANITIDINE HYDROCHLORIDE
     Indication: HIATUS HERNIA
  4. DOXEPIN [Suspect]
     Active Substance: DOXEPIN
     Indication: PRODUCT USED FOR UNKNOWN INDICATION
     Dosage: UNK
     Route: 065
  5. MIRTAZAPINE. [Suspect]
     Active Substance: MIRTAZAPINE
     Indication: PRODUCT USED FOR UNKNOWN INDICATION
     Dosage: 15 MILLIGRAM, ONCE A DAY,QD(EVENING)
     Route: 065
  6. RANITIDIN 1 A PHARMA [Suspect]
     Active Substance: RANITIDINE HYDROCHLORIDE
     Indication: GASTROOESOPHAGEAL REFLUX DISEASE
     Dosage: 300 MILLIGRAM
     Route: 065
     Dates: start: 1999
  7. ARCOXIA [Concomitant]
     Active Substance: ETORICOXIB
     Indication: PRODUCT USED FOR UNKNOWN INDICATION
     Dosage: UNK,ONCE A DAY,  QD (DOSE:1 IN TO 90)
     Route: 065
     Dates: start: 200903
  8. DULOXETINE. [Suspect]
     Active Substance: DULOXETINE
     Indication: PAIN
  9. NOVALGIN (METAMIZOLE SODIUM) [Suspect]
     Active Substance: METAMIZOLE SODIUM
     Indication: PAIN
     Dosage: UNK
     Route: 065
     Dates: start: 200607
  10. DULOXETINE. [Suspect]
     Active Substance: DULOXETINE
     Indication: FIBROMYALGIA
     Dosage: 60 MILLIGRAM, ONCE A DAY(QD)
     Route: 065
     Dates: end: 201010
  11. PANTOPRAZOLE [Concomitant]
     Active Substance: PANTOPRAZOLE
     Indication: PRODUCT USED FOR UNKNOWN INDICATION
     Dosage: UNK, ONCE A DAY, QD (DOSE: 1 IN TO 20 MG)
     Route: 065
     Dates: start: 2009
  12. TILIDIN N [Suspect]
     Active Substance: NALOXONE HYDROCHLORIDE\TILIDINE HYDROCHLORIDE
     Indication: ARTHRALGIA
     Dosage: 4 MILLIGRAM, TWO TIMES A DAY( BID (MORNING AND EVENING)
     Route: 065
  13. ACC LONG [Concomitant]
     Active Substance: ACETYLCYSTEINE
     Indication: PRODUCT USED FOR UNKNOWN INDICATION
     Dosage: UNK, ONCE A DAY, QD (DOSE: 1)
     Route: 065
     Dates: start: 200903

REACTIONS (15)
  - Hyperhidrosis [Recovering/Resolving]
  - Stenosis [Unknown]
  - Lymphoedema [Unknown]
  - Pain [Unknown]
  - Anaemia [Unknown]
  - Weight increased [Unknown]
  - Osteomyelitis [Unknown]
  - Oedema peripheral [Unknown]
  - Atrial tachycardia [Unknown]
  - Tachycardia paroxysmal [Unknown]
  - Infection [Unknown]
  - Muscle spasms [Unknown]
  - Obesity [Unknown]
  - Dizziness [Unknown]
  - Transaminases increased [Unknown]

NARRATIVE: CASE EVENT DATE: 2009
